FAERS Safety Report 6724216-4 (Version None)
Quarter: 2010Q2

REPORT INFORMATION
  Report Type: 
  Country: None (occurrence: None)
  Receive Date: 20100513
  Receipt Date: 20100507
  Transmission Date: 20101027
  Serious: Yes (Other)
  Sender: FDA-Public Use
  Company Number: US-MERCK-1005USA00705

PATIENT
  Age: 69 Year
  Sex: Male
  Weight: 108 kg

DRUGS (15)
  1. DECADRON [Suspect]
     Dosage: WEEKLY ON FRIDAYS
     Route: 048
     Dates: start: 20091218
  2. DECADRON [Suspect]
     Dosage: WEEKLY ON FRIDAYS
     Route: 048
     Dates: start: 20100104
  3. REVLIMID [Suspect]
     Indication: MULTIPLE MYELOMA
     Dosage: DAILY X 21 DAYS, OFF 7 DAYS
     Route: 048
     Dates: start: 20091214, end: 20091228
  4. REVLIMID [Suspect]
     Route: 048
     Dates: start: 20100104
  5. VALTREX [Concomitant]
     Route: 065
  6. VALTREX [Concomitant]
     Route: 048
     Dates: start: 20100125
  7. ATENOLOL [Concomitant]
     Route: 065
  8. DAPSONE [Concomitant]
     Route: 065
  9. FERROUS SULFATE [Concomitant]
     Route: 065
  10. CALCIUM (UNSPECIFIED) AND VITAMIN D (UNSPECIFIED) [Concomitant]
     Route: 065
  11. PHYTONADIONE [Concomitant]
     Route: 065
  12. VITAMINS (UNSPECIFIED) [Concomitant]
     Route: 065
  13. SIMVASTATIN [Concomitant]
     Route: 065
  14. AMLODIPINE BESYLATE [Concomitant]
     Route: 065
  15. ASPIRIN [Concomitant]
     Route: 065

REACTIONS (8)
  - ANAEMIA [None]
  - DECREASED APPETITE [None]
  - DIARRHOEA [None]
  - FATIGUE [None]
  - HEPATIC ENZYME ABNORMAL [None]
  - NAUSEA [None]
  - THROMBOCYTOPENIA [None]
  - WHITE BLOOD CELL COUNT DECREASED [None]
